FAERS Safety Report 17817824 (Version 3)
Quarter: 2020Q3

REPORT INFORMATION
  Report Type: Report from Study
  Country: US (occurrence: US)
  Receive Date: 20200522
  Receipt Date: 20200811
  Transmission Date: 20201102
  Serious: No
  Sender: FDA-Public Use
  Company Number: NVSC2020US141066

PATIENT
  Sex: Female

DRUGS (2)
  1. COSENTYX [Suspect]
     Active Substance: SECUKINUMAB
     Indication: PSORIATIC ARTHROPATHY
     Dosage: 150 MG, QMO
     Route: 058
  2. COSENTYX [Suspect]
     Active Substance: SECUKINUMAB
     Dosage: 300 MG, Q4W
     Route: 058

REACTIONS (8)
  - Mass [Recovered/Resolved]
  - Joint swelling [Unknown]
  - Sinus disorder [Recovering/Resolving]
  - Oral herpes [Unknown]
  - Oropharyngeal pain [Recovering/Resolving]
  - Nodule [Unknown]
  - Arthralgia [Unknown]
  - Nasal congestion [Recovering/Resolving]
